FAERS Safety Report 8542333-3 (Version None)
Quarter: 2012Q3

REPORT INFORMATION
  Report Type: 
  Country: None (occurrence: None)
  Receive Date: 20120726
  Receipt Date: 20120209
  Transmission Date: 20120928
  Serious: No
  Sender: FDA-Public Use
  Company Number: US-ASTRAZENECA-2011SE40653

PATIENT
  Age: 63 Year
  Sex: Female

DRUGS (4)
  1. SEROQUEL XR [Suspect]
     Indication: ANXIETY
     Route: 048
  2. SEROQUEL XR [Suspect]
     Indication: SLEEP DISORDER
     Route: 048
  3. SEROQUEL XR [Suspect]
     Indication: BIPOLAR DISORDER
     Route: 048
  4. SEROQUEL XR [Suspect]
     Indication: DEPRESSION
     Route: 048

REACTIONS (6)
  - OFF LABEL USE [None]
  - BRONCHITIS [None]
  - INSOMNIA [None]
  - DRUG DOSE OMISSION [None]
  - PNEUMONIA [None]
  - MALAISE [None]
